FAERS Safety Report 5269199-1 (Version None)
Quarter: 2007Q1

REPORT INFORMATION
  Report Type: 
  Country: None (occurrence: None)
  Receive Date: 20070319
  Receipt Date: 20070312
  Transmission Date: 20070707
  Serious: Yes (Other)
  Sender: FDA-Public Use
  Company Number: PHBS2007JP04334

PATIENT
  Age: 55 Year
  Sex: Male

DRUGS (4)
  1. SIMULECT [Suspect]
  2. CYCLOSPORINE [Suspect]
     Route: 065
  3. CELLCEPT [Suspect]
     Route: 065
  4. METHYLPREDNISOLONE 16MG TAB [Suspect]
     Route: 065

REACTIONS (2)
  - CYTOMEGALOVIRUS ANTIGEN POSITIVE [None]
  - DUODENAL ULCER [None]
